FAERS Safety Report 16687051 (Version 3)
Quarter: 2019Q3

REPORT INFORMATION
  Report Type: Spontaneous
  Country: EG (occurrence: EG)
  Receive Date: 20190809
  Receipt Date: 20190912
  Transmission Date: 20191004
  Serious: Yes (Other)
  Sender: FDA-Public Use
  Company Number: EG-NOVOPROD-676751

PATIENT
  Age: 64 Year
  Sex: Male

DRUGS (2)
  1. MIXTARD 30 HM PENFILL [Suspect]
     Active Substance: INSULIN HUMAN
     Indication: DIABETES MELLITUS
     Dosage: 60 IU, QD (40 IU/ MORNING + 20 IU/ NIGHT)
     Route: 058
     Dates: start: 2014
  2. VASOPIN [VASOPRESSIN] [Concomitant]
     Indication: HYPERTENSION
     Dosage: 5 YEARS AGO, 1 TAB/NIGHT
     Route: 065

REACTIONS (1)
  - Cataract [Recovered/Resolved]
